FAERS Safety Report 17110421 (Version 2)
Quarter: 2019Q4

REPORT INFORMATION
  Report Type: Spontaneous
  Country: SE (occurrence: SE)
  Receive Date: 20191204
  Receipt Date: 20191213
  Transmission Date: 20200122
  Serious: Yes (Hospitalization)
  Sender: FDA-Public Use
  Company Number: SE-PFIZER INC-2019521509

PATIENT
  Sex: Female

DRUGS (4)
  1. LERGIGAN [PROMETHAZINE HYDROCHLORIDE] [Suspect]
     Active Substance: PROMETHAZINE HYDROCHLORIDE
     Dosage: 750 MG, SINGLE
     Route: 048
     Dates: start: 20181125, end: 20181125
  2. LYRICA [Suspect]
     Active Substance: PREGABALIN
     Dosage: 2.25 G, SINGLE
     Route: 048
     Dates: start: 20181125, end: 20181125
  3. QUETIAPINE. [Suspect]
     Active Substance: QUETIAPINE
     Dosage: 3 G, SINGLE
     Route: 048
     Dates: start: 20181125, end: 20181125
  4. ANAFRANIL [Suspect]
     Active Substance: CLOMIPRAMINE HYDROCHLORIDE
     Dosage: 75 MG, SINGLE
     Route: 048
     Dates: start: 20181125, end: 20181125

REACTIONS (3)
  - Intentional self-injury [Unknown]
  - Intentional overdose [Unknown]
  - Loss of consciousness [Unknown]

NARRATIVE: CASE EVENT DATE: 20181125
